FAERS Safety Report 25603868 (Version 1)
Quarter: 2025Q3

REPORT INFORMATION
  Report Type: Report from Study
  Country: US (occurrence: US)
  Receive Date: 20250725
  Receipt Date: 20250725
  Transmission Date: 20251021
  Serious: No
  Sender: TAKEDA
  Company Number: US-TAKEDA-2022TUS043385

PATIENT
  Sex: Female

DRUGS (6)
  1. HUMAN IMMUNOGLOBULIN G\HYALURONIDASE RECOMBINANT HUMAN [Suspect]
     Active Substance: HUMAN IMMUNOGLOBULIN G\HYALURONIDASE (HUMAN RECOMBINANT)
     Indication: Primary immunodeficiency syndrome
     Dosage: 30 MILLILITER, Q4WEEKS
  2. HUMAN IMMUNOGLOBULIN G\HYALURONIDASE RECOMBINANT HUMAN [Suspect]
     Active Substance: HUMAN IMMUNOGLOBULIN G\HYALURONIDASE (HUMAN RECOMBINANT)
  3. HUMAN IMMUNOGLOBULIN G\HYALURONIDASE RECOMBINANT HUMAN [Suspect]
     Active Substance: HUMAN IMMUNOGLOBULIN G\HYALURONIDASE (HUMAN RECOMBINANT)
     Dosage: 22.5 MILLILITER, Q4WEEKS
     Dates: start: 201608
  4. PREDNISONE [Concomitant]
     Active Substance: PREDNISONE
  5. BENADRYL [Concomitant]
     Active Substance: DIPHENHYDRAMINE HYDROCHLORIDE
  6. TYLENOL [Concomitant]
     Active Substance: ACETAMINOPHEN

REACTIONS (9)
  - Injection site erythema [Not Recovered/Not Resolved]
  - Sinusitis [Not Recovered/Not Resolved]
  - Skin infection [Not Recovered/Not Resolved]
  - Fungal infection [Not Recovered/Not Resolved]
  - Malaise [Not Recovered/Not Resolved]
  - Injection site swelling [Not Recovered/Not Resolved]
  - Nausea [Not Recovered/Not Resolved]
  - Headache [Not Recovered/Not Resolved]
  - Hypersensitivity [Not Recovered/Not Resolved]
